FAERS Safety Report 8825309 (Version 2)
Quarter: 2015Q2

REPORT INFORMATION
  Report Type: Report from Study
  Country: US (occurrence: US)
  Receive Date: 20121004
  Receipt Date: 20150410
  Transmission Date: 20150821
  Serious: Yes (Death)
  Sender: FDA-Public Use
  Company Number: US-ROCHE-1096285

PATIENT
  Sex: Male
  Weight: 59.02 kg

DRUGS (16)
  1. RITUXAN [Suspect]
     Active Substance: RITUXIMAB
     Indication: PRECURSOR B-LYMPHOBLASTIC LYMPHOMA
     Route: 042
     Dates: start: 20060607
  2. VINCRISTINE [Concomitant]
     Active Substance: VINCRISTINE
     Route: 042
  3. ACETAMINOPHEN. [Concomitant]
     Active Substance: ACETAMINOPHEN
     Route: 048
  4. TYLENOL [Concomitant]
     Active Substance: ACETAMINOPHEN
     Route: 048
  5. BENADRYL [Concomitant]
     Active Substance: DIPHENHYDRAMINE HYDROCHLORIDE
     Route: 048
  6. DOXORUBICIN [Concomitant]
     Active Substance: DOXORUBICIN
     Route: 042
  7. ATIVAN [Concomitant]
     Active Substance: LORAZEPAM
     Route: 042
  8. CYTOXAN [Concomitant]
     Active Substance: CYCLOPHOSPHAMIDE
     Route: 042
  9. RITUXAN [Suspect]
     Active Substance: RITUXIMAB
     Indication: LYMPHOMA
     Route: 042
     Dates: start: 20060202
  10. PREDNISONE. [Concomitant]
     Active Substance: PREDNISONE
     Route: 048
  11. RITUXAN [Suspect]
     Active Substance: RITUXIMAB
     Indication: LYMPHOCYTIC LYMPHOMA
     Route: 042
     Dates: start: 20060818
  12. RITUXAN [Suspect]
     Active Substance: RITUXIMAB
     Indication: NON-HODGKIN^S LYMPHOMA
  13. ADRIAMYCIN [Concomitant]
     Active Substance: DOXORUBICIN HYDROCHLORIDE
     Route: 042
  14. ANZEMET [Concomitant]
     Active Substance: DOLASETRON MESYLATE
     Route: 048
  15. DEXAMETHASONE. [Concomitant]
     Active Substance: DEXAMETHASONE
     Route: 048
  16. ARANESP [Concomitant]
     Active Substance: DARBEPOETIN ALFA
     Route: 058

REACTIONS (4)
  - Death [Fatal]
  - Abdominal discomfort [Unknown]
  - Anorectal discomfort [Unknown]
  - Abdominal pain [Unknown]
